FAERS Safety Report 9000150 (Version 1)
Quarter: 2013Q1

REPORT INFORMATION
  Report Type: Report from Study
  Country: DE (occurrence: DE)
  Receive Date: 20130102
  Receipt Date: 20130102
  Transmission Date: 20140127
  Serious: Yes (Hospitalization)
  Sender: FDA-Public Use
  Company Number: DE-SANOFI-AVENTIS-2012SA070168

PATIENT
  Age: 55 Year
  Sex: Male
  Weight: 87 kg

DRUGS (21)
  1. OXALIPLATIN [Suspect]
     Indication: RECTAL CANCER
     Route: 042
     Dates: start: 20120509, end: 20120912
  2. OXALIPLATIN [Suspect]
     Indication: RECTAL CANCER
     Route: 042
     Dates: start: 20120919, end: 20121002
  3. OXALIPLATIN [Suspect]
     Indication: RECTAL CANCER
     Route: 042
     Dates: start: 20121024
  4. BEVACIZUMAB [Suspect]
     Indication: RECTAL CANCER
     Route: 042
     Dates: start: 20120509, end: 20120912
  5. BEVACIZUMAB [Suspect]
     Indication: RECTAL CANCER
     Route: 042
     Dates: start: 20120509, end: 20120912
  6. BEVACIZUMAB [Suspect]
     Indication: RECTAL CANCER
     Route: 042
     Dates: start: 20120919, end: 20121002
  7. BEVACIZUMAB [Suspect]
     Indication: RECTAL CANCER
     Route: 042
     Dates: start: 20121024
  8. BEVACIZUMAB [Suspect]
     Indication: RECTAL CANCER
     Route: 042
     Dates: start: 20120919, end: 20121002
  9. BEVACIZUMAB [Suspect]
     Indication: RECTAL CANCER
     Route: 042
     Dates: start: 20121024
  10. FLUOROURACIL [Suspect]
     Indication: RECTAL CANCER
     Route: 042
     Dates: start: 20120509, end: 20120912
  11. FLUOROURACIL [Suspect]
     Indication: RECTAL CANCER
     Route: 042
     Dates: start: 20120919, end: 20121002
  12. FLUOROURACIL [Suspect]
     Indication: RECTAL CANCER
     Route: 042
     Dates: start: 20121024
  13. CALCIUM FOLINATE [Suspect]
     Indication: RECTAL CANCER
     Route: 042
     Dates: start: 20120509, end: 20120912
  14. CALCIUM FOLINATE [Suspect]
     Indication: RECTAL CANCER
     Route: 042
     Dates: start: 20120919, end: 20121002
  15. CALCIUM FOLINATE [Suspect]
     Indication: RECTAL CANCER
     Route: 042
     Dates: start: 20121024
  16. METOCLOPRAMIDE [Concomitant]
     Indication: VOMITING
     Route: 042
  17. NOVALGIN [Concomitant]
     Indication: PAIN
     Route: 048
  18. NOVALGIN [Concomitant]
     Indication: PAIN
     Route: 042
  19. DIPIDOLOR [Concomitant]
     Indication: PAIN
     Route: 058
     Dates: start: 20120911, end: 20120911
  20. BUSCOPAN [Concomitant]
     Indication: MUSCLE SPASMS
     Route: 048
     Dates: start: 20120911, end: 20120911
  21. METOCLOPRAMIDE [Concomitant]
     Dates: start: 20120910, end: 20120911

REACTIONS (3)
  - Renal colic [Unknown]
  - Calculus ureteric [Recovered/Resolved]
  - Acute abdomen [Unknown]
